FAERS Safety Report 7995673-0 (Version None)
Quarter: 2011Q4

REPORT INFORMATION
  Report Type: 
  Country: None (occurrence: None)
  Receive Date: 20111220
  Receipt Date: 20111216
  Transmission Date: 20120403
  Serious: Yes (Life-Threatening, Hospitalization, Other)
  Sender: FDA-Public Use
  Company Number: JP-B.I. PHARMACEUTICALS,INC./RIDGEFIELD-2011-BP-27596NB

PATIENT
  Sex: Male
  Weight: 66 kg

DRUGS (9)
  1. PRADAXA [Suspect]
     Dosage: 220 MG
     Route: 048
     Dates: start: 20111021, end: 20111112
  2. TORSEMIDE [Concomitant]
     Indication: CARDIAC FAILURE CHRONIC
     Dosage: 6 MG
     Route: 048
     Dates: start: 20110902, end: 20111112
  3. PERINDOPRIL ERBUMINE [Concomitant]
     Indication: CARDIAC FAILURE CHRONIC
     Dosage: 2 MG
     Route: 048
     Dates: start: 20110902, end: 20111112
  4. DIGOXIN [Concomitant]
     Indication: CARDIAC FAILURE CHRONIC
     Dosage: 0.0625 MG
     Route: 048
     Dates: start: 20110902, end: 20111112
  5. RUEFRIEN [Concomitant]
     Indication: GASTRITIS
     Dosage: 0.5 G
     Route: 048
     Dates: start: 20110801, end: 20111112
  6. INNOLET 30R [Concomitant]
     Indication: DIABETES MELLITUS
     Dosage: 8 U
     Route: 065
     Dates: start: 20111021, end: 20111112
  7. PRADAXA [Suspect]
     Indication: THROMBOSIS PROPHYLAXIS
     Dosage: 220 MG
     Route: 048
     Dates: start: 20110801, end: 20111112
  8. SELTEPNON [Concomitant]
     Dosage: 50 MG
     Route: 048
  9. NOVORAPID [Concomitant]
     Indication: DIABETES MELLITUS
     Dosage: 10 U
     Route: 065
     Dates: start: 20110831, end: 20111020

REACTIONS (3)
  - LOWER GASTROINTESTINAL HAEMORRHAGE [None]
  - CARDIAC FAILURE [None]
  - SHOCK HAEMORRHAGIC [None]
